FAERS Safety Report 9458359 (Version 2)
Quarter: 2013Q3

REPORT INFORMATION
  Report Type: Spontaneous
  Country: IT (occurrence: IT)
  Receive Date: 20130814
  Receipt Date: 20130823
  Transmission Date: 20140515
  Serious: Yes (Hospitalization)
  Sender: FDA-Public Use
  Company Number: IT-PFIZER INC-2013232423

PATIENT
  Age: 27 Year
  Sex: Female

DRUGS (2)
  1. XANAX [Suspect]
     Dosage: 10 ML, TOTAL
     Route: 048
     Dates: start: 20130715, end: 20130715
  2. LEXOTAN [Suspect]
     Dosage: 10 ML, TOTAL
     Route: 048
     Dates: start: 20130715, end: 20130715

REACTIONS (2)
  - Overdose [Recovered/Resolved]
  - Sopor [Recovered/Resolved]
